FAERS Safety Report 8838315 (Version 1)
Quarter: 2012Q4

REPORT INFORMATION
  Report Type: 
  Country: US (occurrence: US)
  Receive Date: 20121012
  Receipt Date: 20121012
  Transmission Date: 20130627
  Serious: Yes (Disabling)
  Sender: FDA-Public Use
  Company Number: US-PFIZER INC-2012252482

PATIENT
  Age: 47 Year
  Sex: Female
  Weight: 77 kg

DRUGS (2)
  1. NEURONTIN [Suspect]
     Indication: FIBROMYALGIA
     Dosage: UNK, 2x/day
     Route: 048
     Dates: start: 2004, end: 2004
  2. NEURONTIN [Suspect]
     Indication: NERVE INJURY

REACTIONS (3)
  - Arthritis [Unknown]
  - Restless legs syndrome [Unknown]
  - Drug ineffective [Unknown]
